FAERS Safety Report 9467700 (Version 2)
Quarter: 2013Q3

REPORT INFORMATION
  Report Type: Report from Study
  Country: US (occurrence: US)
  Receive Date: 20130821
  Receipt Date: 20130902
  Transmission Date: 20140515
  Serious: Yes (Hospitalization)
  Sender: FDA-Public Use
  Company Number: US-JNJFOC-20130806189

PATIENT
  Age: 16 Year
  Sex: Male
  Weight: 92.3 kg

DRUGS (12)
  1. REMICADE [Suspect]
     Indication: CROHN^S DISEASE
     Route: 042
     Dates: start: 20081215, end: 20090122
  2. HUMIRA [Concomitant]
     Indication: CROHN^S DISEASE
     Route: 065
     Dates: start: 20130517
  3. HUMIRA [Concomitant]
     Indication: CROHN^S DISEASE
     Route: 065
     Dates: start: 20130510
  4. HUMIRA [Concomitant]
     Indication: CROHN^S DISEASE
     Route: 065
     Dates: start: 20130419
  5. HUMIRA [Concomitant]
     Indication: CROHN^S DISEASE
     Route: 065
     Dates: start: 20100407
  6. 5-ASA [Concomitant]
     Route: 048
  7. CHOLESTYRAMINE [Concomitant]
     Route: 065
  8. FOLIC ACID [Concomitant]
     Route: 065
  9. CALCIUM [Concomitant]
     Route: 065
  10. CHOLECALCIFEROL [Concomitant]
     Route: 065
  11. HYDROXYZINE [Concomitant]
     Route: 065
  12. OMEPRAZOLE [Concomitant]
     Route: 065

REACTIONS (1)
  - Irritable bowel syndrome [Recovered/Resolved]
